FAERS Safety Report 4611935-9 (Version None)
Quarter: 2005Q2

REPORT INFORMATION
  Report Type: 
  Country: None (occurrence: None)
  Receive Date: 20050308
  Receipt Date: 20041216
  Transmission Date: 20051028
  Serious: Yes (Other)
  Sender: FDA-Public Use
  Company Number: 2004UW25658

PATIENT

DRUGS (1)
  1. CRESTOR [Suspect]

REACTIONS (3)
  - ATONIC URINARY BLADDER [None]
  - GASTRIC ATONY [None]
  - HEPATITIS [None]
